FAERS Safety Report 15179602 (Version 2)
Quarter: 2018Q3

REPORT INFORMATION
  Report Type: Spontaneous
  Country: US (occurrence: US)
  Receive Date: 20180723
  Receipt Date: 20180726
  Transmission Date: 20181010
  Serious: Yes (Other)
  Sender: FDA-Public Use
  Company Number: US-BEH-2018092868

PATIENT
  Sex: Female
  Weight: 12.7 kg

DRUGS (11)
  1. ACETAMINOPHEN. [Concomitant]
     Active Substance: ACETAMINOPHEN
  2. REVATIO [Concomitant]
     Active Substance: SILDENAFIL CITRATE
  3. LIDOCAINE. [Concomitant]
     Active Substance: LIDOCAINE
  4. MULTIVITAMINS [Concomitant]
     Active Substance: VITAMINS
  5. HIZENTRA [Suspect]
     Active Substance: HUMAN IMMUNOGLOBULIN G
     Indication: HYPOGAMMAGLOBULINAEMIA
     Dosage: UNK
     Route: 058
  6. DIPHENHYDRAMINE. [Concomitant]
     Active Substance: DIPHENHYDRAMINE
  7. EPINEPHRINE. [Concomitant]
     Active Substance: EPINEPHRINE
  8. SALICYLATE SODIUM [Concomitant]
     Active Substance: SODIUM SALICYLATE
  9. SPIRONOLACTONE. [Concomitant]
     Active Substance: SPIRONOLACTONE
  10. HIZENTRA [Suspect]
     Active Substance: HUMAN IMMUNOGLOBULIN G
     Dosage: 2 G, QW
     Route: 058
     Dates: start: 20180625
  11. NEXIUM [Concomitant]
     Active Substance: ESOMEPRAZOLE MAGNESIUM

REACTIONS (2)
  - Viral infection [Unknown]
  - Dyspnoea [Unknown]
